FAERS Safety Report 23967139 (Version 2)
Quarter: 2024Q2

REPORT INFORMATION
  Report Type: Report from Study
  Country: US (occurrence: US)
  Receive Date: 20240612
  Receipt Date: 20240614
  Transmission Date: 20240716
  Serious: No
  Sender: FDA-Public Use
  Company Number: US-BIOVITRUM-2024-US-008401

PATIENT
  Age: 81 Year
  Sex: Female

DRUGS (2)
  1. KINERET [Suspect]
     Active Substance: ANAKINRA
     Indication: Osteoarthritis
     Dosage: DAILY
     Route: 058
     Dates: start: 20240423
  2. KINERET [Suspect]
     Active Substance: ANAKINRA
     Indication: Connective tissue disorder

REACTIONS (5)
  - Off label use [Not Recovered/Not Resolved]
  - Product dose omission in error [Unknown]
  - Product dose omission issue [Unknown]
  - Pain [Unknown]
  - Injection site pain [Unknown]

NARRATIVE: CASE EVENT DATE: 20240423
